FAERS Safety Report 25925179 (Version 1)
Quarter: 2025Q4

REPORT INFORMATION
  Report Type: Spontaneous
  Country: US (occurrence: US)
  Receive Date: 20251015
  Receipt Date: 20251015
  Transmission Date: 20260118
  Serious: No
  Sender: FRESENIUS KABI
  Company Number: US-FreseniusKabi-FK202513792

PATIENT
  Age: 58 Year
  Sex: Female

DRUGS (2)
  1. MORPHINE [Suspect]
     Active Substance: MORPHINE
     Indication: Product used for unknown indication
     Dosage: CONCENTRATION 0.8MG/ML
     Route: 037
  2. PRIALT [Suspect]
     Active Substance: ZICONOTIDE ACETATE
     Indication: Product used for unknown indication
     Dosage: REPORTED DATE OF PRIALT PUMP IMPLANT WAS 21-FEB-2025.?THE PRIALT PUMP WAS EXPLANTED ON 23-SEP-2025?C
     Route: 037

REACTIONS (2)
  - Off label use [Unknown]
  - Inadequate analgesia [Unknown]
